FAERS Safety Report 4432533-6 (Version None)
Quarter: 2004Q3

REPORT INFORMATION
  Report Type: 
  Country: None (occurrence: None)
  Receive Date: 20040825
  Receipt Date: 20040707
  Transmission Date: 20050211
  Serious: Yes (Other)
  Sender: FDA-Public Use
  Company Number: PHNU2004DE02413

PATIENT
  Age: 10 Year
  Sex: Male
  Weight: 49 kg

DRUGS (1)
  1. RITALIN [Suspect]
     Dosage: 15 MG/DAY
     Route: 048
     Dates: start: 20040309

REACTIONS (2)
  - BLOOD THYROID STIMULATING HORMONE INCREASED [None]
  - HYPOTHYROIDISM [None]
